FAERS Safety Report 24297247 (Version 1)
Quarter: 2024Q3

REPORT INFORMATION
  Report Type: Spontaneous
  Country: GB (occurrence: GB)
  Receive Date: 20240909
  Receipt Date: 20240909
  Transmission Date: 20241016
  Serious: Yes (Hospitalization, Other)
  Sender: HELSINN HEALTHCARE
  Company Number: GB-HBP-2024GB031164

PATIENT
  Sex: Male

DRUGS (1)
  1. MECHLORETHAMINE HYDROCHLORIDE [Suspect]
     Active Substance: MECHLORETHAMINE HYDROCHLORIDE
     Indication: Cutaneous T-cell lymphoma
     Dosage: UNK, UNKNOWN
     Route: 061
     Dates: start: 202308

REACTIONS (1)
  - Myocardial infarction [Unknown]
